FAERS Safety Report 24991827 (Version 2)
Quarter: 2025Q2

REPORT INFORMATION
  Report Type: Report from Study
  Country: CA (occurrence: CA)
  Receive Date: 20250220
  Receipt Date: 20250610
  Transmission Date: 20250716
  Serious: Yes (Hospitalization, Other)
  Sender: TAKEDA
  Company Number: CA-TAKEDA-2023TUS103208

PATIENT
  Age: 60 Year
  Sex: Male

DRUGS (17)
  1. VEDOLIZUMAB [Suspect]
     Active Substance: VEDOLIZUMAB
     Indication: Crohn^s disease
  2. VEDOLIZUMAB [Suspect]
     Active Substance: VEDOLIZUMAB
  3. VEDOLIZUMAB [Suspect]
     Active Substance: VEDOLIZUMAB
  4. VEDOLIZUMAB [Suspect]
     Active Substance: VEDOLIZUMAB
  5. VEDOLIZUMAB [Suspect]
     Active Substance: VEDOLIZUMAB
  6. PANTOPRAZOLE [Concomitant]
     Active Substance: PANTOPRAZOLE
  7. AVENTYL [Concomitant]
     Active Substance: NORTRIPTYLINE HYDROCHLORIDE
  8. ARIPIPRAZOLE [Concomitant]
     Active Substance: ARIPIPRAZOLE
  9. CLONAZEPAM [Concomitant]
     Active Substance: CLONAZEPAM
  10. VITAMIN D [Concomitant]
     Active Substance: VITAMIN D NOS
  11. RIFAXIMIN [Concomitant]
     Active Substance: RIFAXIMIN
  12. DULOXETINE [Concomitant]
     Active Substance: DULOXETINE
  13. TAMSULOSIN [Concomitant]
     Active Substance: TAMSULOSIN
  14. QUETIAPINE [Concomitant]
     Active Substance: QUETIAPINE
  15. RISPERIDONE [Concomitant]
     Active Substance: RISPERIDONE
  16. FERROUS GLUCONATE [Concomitant]
     Active Substance: FERROUS GLUCONATE
  17. VITAMIN B12 [Concomitant]
     Active Substance: CYANOCOBALAMIN

REACTIONS (8)
  - Intestinal obstruction [Recovering/Resolving]
  - Pneumonia [Recovering/Resolving]
  - Defaecation urgency [Unknown]
  - Micturition urgency [Unknown]
  - Urinary incontinence [Unknown]
  - Blood pressure decreased [Unknown]
  - Cognitive disorder [Unknown]
  - Nausea [Unknown]

NARRATIVE: CASE EVENT DATE: 20250213
